FAERS Safety Report 5764288-7 (Version None)
Quarter: 2008Q2

REPORT INFORMATION
  Report Type: 
  Country: None (occurrence: None)
  Receive Date: 20080610
  Receipt Date: 20080515
  Transmission Date: 20081010
  Serious: No
  Sender: FDA-Public Use
  Company Number: US-BOEHRINGER INGELHEIM GMBH, GERMANY-2008-BP-06220BP

PATIENT
  Sex: Male
  Weight: 29 kg

DRUGS (1)
  1. CATAPRES-TTS-1 [Suspect]
     Dates: start: 20080303

REACTIONS (1)
  - APPLICATION SITE RASH [None]
